FAERS Safety Report 5393260-4 (Version None)
Quarter: 2007Q3

REPORT INFORMATION
  Report Type: 
  Country: None (occurrence: None)
  Receive Date: 20070723
  Receipt Date: 20070712
  Transmission Date: 20080115
  Serious: Yes (Hospitalization)
  Sender: FDA-Public Use
  Company Number: US-JNJFOC-20070702957

PATIENT
  Sex: Female

DRUGS (1)
  1. REMICADE [Suspect]
     Indication: CROHN'S DISEASE

REACTIONS (5)
  - CHILLS [None]
  - CSF WHITE BLOOD CELL COUNT POSITIVE [None]
  - HEADACHE [None]
  - MYALGIA [None]
  - PYREXIA [None]
